FAERS Safety Report 16962989 (Version 1)
Quarter: 2019Q4

REPORT INFORMATION
  Report Type: Report from Study
  Country: JP (occurrence: JP)
  Receive Date: 20191025
  Receipt Date: 20191025
  Transmission Date: 20200122
  Serious: Yes (Other)
  Sender: FDA-Public Use
  Company Number: JP-TAKEDA-2019TUS059888

PATIENT

DRUGS (5)
  1. THALIDOMIDE [Concomitant]
     Active Substance: THALIDOMIDE
     Dosage: UNK
     Route: 048
  2. LENALIDOMIDE [Concomitant]
     Active Substance: LENALIDOMIDE
     Indication: POEMS SYNDROME
     Dosage: UNK
     Route: 048
  3. MELPHALAN. [Concomitant]
     Active Substance: MELPHALAN
     Indication: POEMS SYNDROME
     Dosage: 200 MILLIGRAM/SQ. METER, QD
     Route: 065
  4. DEXAMETHASONE. [Concomitant]
     Active Substance: DEXAMETHASONE
     Indication: POEMS SYNDROME
     Dosage: UNK
     Route: 065
  5. BORTEZOMIB. [Suspect]
     Active Substance: BORTEZOMIB
     Indication: POEMS SYNDROME
     Dosage: UNK
     Route: 065

REACTIONS (5)
  - Sepsis [Unknown]
  - Off label use [Unknown]
  - Engraftment syndrome [Unknown]
  - Febrile neutropenia [Unknown]
  - Product use in unapproved indication [Unknown]
